FAERS Safety Report 7059669-8 (Version None)
Quarter: 2010Q4

REPORT INFORMATION
  Report Type: 
  Country: None (occurrence: None)
  Receive Date: 20101025
  Receipt Date: 20101012
  Transmission Date: 20110411
  Serious: Yes (Other)
  Sender: FDA-Public Use
  Company Number: DE-ACTELION-A-US2010-40602

PATIENT
  Sex: Female

DRUGS (1)
  1. ILOPROST INHALATION ROW [Suspect]
     Indication: PULMONARY ARTERIAL HYPERTENSION
     Route: 055

REACTIONS (3)
  - DRUG INEFFECTIVE [None]
  - EPISTAXIS [None]
  - NASAL CONGESTION [None]
